FAERS Safety Report 8909791 (Version 3)
Quarter: 2012Q4

REPORT INFORMATION
  Report Type: 
  Country: US (occurrence: US)
  Receive Date: 20121115
  Receipt Date: 20121228
  Transmission Date: 20130627
  Serious: Yes (Other)
  Sender: FDA-Public Use
  Company Number: US-JNJFOC-20121105761

PATIENT
  Age: 86 Year
  Sex: Female
  Weight: 72.58 kg

DRUGS (3)
  1. CETIRIZINE HYDROCHLORIDE [Suspect]
     Indication: RASH PRURITIC
     Route: 048
  2. CETIRIZINE HYDROCHLORIDE [Suspect]
     Indication: RASH PRURITIC
     Dosage: 3 tablets once a day for three days
     Route: 048
     Dates: start: 20121103, end: 20121106
  3. ARICEPT [Suspect]
     Indication: DEMENTIA ALZHEIMER^S TYPE
     Dosage: since 5 years
     Route: 065
     Dates: start: 2007

REACTIONS (5)
  - Hallucination [Recovered/Resolved]
  - Overdose [Recovered/Resolved]
  - Drug administered to patient of inappropriate age [Unknown]
  - Off label use [Unknown]
  - Disorientation [None]
